FAERS Safety Report 10177802 (Version 1)
Quarter: 2014Q2

REPORT INFORMATION
  Report Type: Spontaneous
  Country: US (occurrence: US)
  Receive Date: 20140516
  Receipt Date: 20140516
  Transmission Date: 20141212
  Serious: No
  Sender: FDA-Public Use
  Company Number: US-SA-2013SA097479

PATIENT
  Age: 81 Year
  Sex: Female

DRUGS (2)
  1. APIDRA SOLOSTAR [Suspect]
     Indication: TYPE 2 DIABETES MELLITUS
     Dosage: THERAPY STARTED SINCE ABOUT TWO TO THREE YEARS DOSE:16 UNIT(S)
     Route: 058
  2. SOLOSTAR [Concomitant]

REACTIONS (4)
  - Glossodynia [Unknown]
  - Dry mouth [Unknown]
  - Dry throat [Unknown]
  - Dysphonia [Unknown]
